FAERS Safety Report 6257902-3 (Version None)
Quarter: 2009Q3

REPORT INFORMATION
  Report Type: 
  Country: None (occurrence: None)
  Receive Date: 20090707
  Receipt Date: 20090624
  Transmission Date: 20100115
  Serious: Yes (Other)
  Sender: FDA-Public Use
  Company Number: US-PFIZER INC-2009232124

PATIENT
  Sex: Female
  Weight: 65.77 kg

DRUGS (3)
  1. XALATAN [Suspect]
     Indication: GLAUCOMA
     Dosage: UNK
  2. ACETYLSALICYLIC ACID [Concomitant]
     Dosage: UNK
  3. ALEVE [Concomitant]
     Dosage: UNK

REACTIONS (2)
  - HEART RATE DECREASED [None]
  - HYPERTENSION [None]
